FAERS Safety Report 12587499 (Version 3)
Quarter: 2018Q1

REPORT INFORMATION
  Report Type: Report from Study
  Country: US (occurrence: US)
  Receive Date: 20160725
  Receipt Date: 20180105
  Transmission Date: 20180508
  Serious: No
  Sender: FDA-Public Use
  Company Number: US-AMGEN-USASL2016057507

PATIENT
  Age: 44 Year
  Sex: Female

DRUGS (1)
  1. REPATHA [Suspect]
     Active Substance: EVOLOCUMAB
     Indication: HYPERCHOLESTEROLAEMIA
     Dosage: 140 MG, QWK
     Route: 058
     Dates: start: 20160201

REACTIONS (3)
  - Device issue [Recovered/Resolved]
  - Product administered at inappropriate site [Unknown]
  - Underdose [Unknown]

NARRATIVE: CASE EVENT DATE: 20160503
